FAERS Safety Report 9457535 (Version 1)
Quarter: 2013Q3

REPORT INFORMATION
  Report Type: Spontaneous
  Country: GB (occurrence: None)
  Receive Date: 20130809
  Receipt Date: 20130809
  Transmission Date: 20140515
  Serious: Yes (Life-Threatening)
  Sender: FDA-Public Use
  Company Number: FK201303052

PATIENT
  Age: 54 None
  Sex: Male

DRUGS (3)
  1. PROPOFOL [Suspect]
     Indication: GENERAL ANAESTHESIA
     Dosage: (NOT OTHERWISE SPECIFIED)
     Route: 042
  2. FENTANYL (FENTANYL) [Suspect]
     Indication: GENERAL ANAESTHESIA
  3. ATRACURIUM [Suspect]
     Indication: GENERAL ANAESTHESIA

REACTIONS (1)
  - Anaphylactic reaction [None]
